FAERS Safety Report 5703676-1 (Version None)
Quarter: 2008Q2

REPORT INFORMATION
  Report Type: 
  Country: None (occurrence: None)
  Receive Date: 20080413
  Receipt Date: 20080401
  Transmission Date: 20081010
  Serious: Yes (Other)
  Sender: FDA-Public Use
  Company Number: PHHO2008JP04321

PATIENT
  Age: 66 Year
  Sex: Male

DRUGS (3)
  1. DICLOFENAC SODIUM [Suspect]
     Route: 054
     Dates: end: 20070920
  2. MORPHINE [Suspect]
     Indication: CANCER PAIN
     Dosage: 20MG DAILY
     Route: 048
     Dates: start: 20070907, end: 20070920
  3. LOXOPROFEN [Suspect]
     Dates: end: 20070920

REACTIONS (5)
  - BLOOD POTASSIUM INCREASED [None]
  - BLOOD UREA INCREASED [None]
  - MALIGNANT NEOPLASM PROGRESSION [None]
  - RENAL IMPAIRMENT [None]
  - URETHRAL STENOSIS [None]
